FAERS Safety Report 7403963-5 (Version None)
Quarter: 2011Q2

REPORT INFORMATION
  Report Type: 
  Country: None (occurrence: None)
  Receive Date: 20110401
  Receipt Date: 20110316
  Transmission Date: 20111010
  Serious: Yes (Other)
  Sender: FDA-Public Use
  Company Number: 2011001232

PATIENT
  Age: 83 Year
  Sex: Female

DRUGS (17)
  1. TARCEVA [Suspect]
     Indication: LUNG NEOPLASM MALIGNANT
     Dosage: 150 MG, QD, ORAL
     Route: 048
     Dates: start: 20110307
  2. NEURONTIN [Concomitant]
  3. SYNTHROID [Concomitant]
  4. SAM-E (ADEMETIONINE) [Concomitant]
  5. SINGULAIR [Concomitant]
  6. VIVELLE-DOT [Concomitant]
  7. VESICARE [Concomitant]
  8. ADVAIR HFA [Concomitant]
  9. GLUCOS/CHOND [Concomitant]
  10. ASPIRIN ADUL [Concomitant]
  11. CALCIUM + D [Concomitant]
  12. MULTIVITAMIN [Concomitant]
  13. FISH OIL (FISH OIL) [Concomitant]
  14. VITAMIN B-12 [Concomitant]
  15. PREMARIN VAG CRE [Concomitant]
  16. VITAMIN D [Concomitant]
  17. VITAMIN B6 [Concomitant]

REACTIONS (7)
  - PRURITUS [None]
  - RASH PRURITIC [None]
  - EYE PAIN [None]
  - CORNEAL ABRASION [None]
  - RASH [None]
  - VULVOVAGINAL PAIN [None]
  - FATIGUE [None]
